FAERS Safety Report 10008682 (Version 2)
Quarter: 2014Q1

REPORT INFORMATION
  Report Type: Spontaneous
  Country: US (occurrence: US)
  Receive Date: 20140312
  Receipt Date: 20140312
  Transmission Date: 20141002
  Serious: No
  Sender: FDA-Public Use
  Company Number: US-INCYTE CORPORATION-2012IN000132

PATIENT
  Age: 64 Year
  Sex: Male
  Weight: 78.78 kg

DRUGS (4)
  1. JAKAFI [Suspect]
     Indication: MYELOFIBROSIS
     Dosage: 20 MG, BID
     Route: 048
     Dates: start: 20111220
  2. JAKAFI [Suspect]
     Indication: POLYCYTHAEMIA
  3. ALLOPURINOL [Concomitant]
     Indication: POLYCYTHAEMIA VERA
     Dosage: 100 MG, UNK
  4. ASPIRIN [Concomitant]
     Dosage: 81 MG, UNK

REACTIONS (2)
  - Dry eye [Not Recovered/Not Resolved]
  - Cataract [Unknown]
